FAERS Safety Report 18128155 (Version 1)
Quarter: 2020Q3

REPORT INFORMATION
  Report Type: Spontaneous
  Country: US (occurrence: US)
  Receive Date: 20200810
  Receipt Date: 20200810
  Transmission Date: 20201103
  Serious: Yes (Other)
  Sender: FDA-Public Use
  Company Number: US-ALLERGAN-2028954US

PATIENT
  Sex: Female

DRUGS (1)
  1. URSODEOXYCHOLIC ACID ? BP [Suspect]
     Active Substance: URSODIOL
     Indication: CHOLELITHIASIS
     Dosage: 300 MG CAPSULES
     Dates: start: 201812

REACTIONS (3)
  - Off label use [Unknown]
  - Gastrointestinal tube insertion [Unknown]
  - Wrong technique in product usage process [Unknown]

NARRATIVE: CASE EVENT DATE: 2019
